FAERS Safety Report 4596976-2 (Version None)
Quarter: 2005Q1

REPORT INFORMATION
  Report Type: 
  Country: None (occurrence: None)
  Receive Date: 20050302
  Receipt Date: 20050221
  Transmission Date: 20050727
  Serious: Yes (Other)
  Sender: FDA-Public Use
  Company Number: LV-ABBOTT-05P-287-0291780-00

PATIENT
  Age: 22 Year
  Sex: Male

DRUGS (1)
  1. KLACID SR [Suspect]
     Indication: PHARYNGOTONSILLITIS
     Route: 048
     Dates: start: 20050201, end: 20050201

REACTIONS (3)
  - AGITATION [None]
  - HEADACHE [None]
  - HEART RATE INCREASED [None]
